FAERS Safety Report 25041467 (Version 1)
Quarter: 2025Q1

REPORT INFORMATION
  Report Type: Spontaneous
  Country: MY (occurrence: MY)
  Receive Date: 20250305
  Receipt Date: 20250305
  Transmission Date: 20250408
  Serious: Yes (Death, Life-Threatening, Other)
  Sender: PFIZER
  Company Number: MY-PFIZER INC-202500047079

PATIENT
  Age: 5 Day

DRUGS (4)
  1. MAGNESIUM SULFATE [Suspect]
     Active Substance: MAGNESIUM SULFATE
     Indication: Long QT syndrome congenital
     Route: 064
  2. HUMAN IMMUNOGLOBULIN G [Suspect]
     Active Substance: HUMAN IMMUNOGLOBULIN G
     Indication: Long QT syndrome congenital
     Route: 064
  3. PROPRANOLOL [Suspect]
     Active Substance: PROPRANOLOL HYDROCHLORIDE
     Indication: Long QT syndrome congenital
     Route: 064
  4. HYDROXYCHLOROQUINE [Suspect]
     Active Substance: HYDROXYCHLOROQUINE
     Indication: Long QT syndrome congenital
     Route: 064

REACTIONS (3)
  - Death [Fatal]
  - Premature baby [Unknown]
  - Maternal exposure during pregnancy [Unknown]
